FAERS Safety Report 22362488 (Version 1)
Quarter: 2023Q2

REPORT INFORMATION
  Report Type: Spontaneous
  Country: US (occurrence: US)
  Receive Date: 20230524
  Receipt Date: 20230524
  Transmission Date: 20230722
  Serious: No
  Sender: FDA-Public Use
  Company Number: US-009507513-2305USA004347

PATIENT
  Age: 17 Year
  Sex: Female

DRUGS (3)
  1. KEYTRUDA [Suspect]
     Active Substance: PEMBROLIZUMAB
     Indication: Xeroderma pigmentosum
     Dosage: 2MG/KG, EVERY 3 WEEKS
     Route: 065
     Dates: start: 2017
  2. CALCIPOTRIENE [Concomitant]
     Active Substance: CALCIPOTRIENE
     Indication: Xeroderma pigmentosum
     Dosage: 0.005%, FACE/SCALP/UPPER EXTREMITIES QUARTERLY FOR 4 DAYS TWICE DAILY.
     Route: 061
     Dates: start: 2017
  3. FLUOROURACIL [Concomitant]
     Active Substance: FLUOROURACIL
     Indication: Xeroderma pigmentosum
     Dosage: 5.0%, FACE/SCALP/UPPER EXTREMITIES QUARTERLY FOR 4 DAYS TWICE DAILY.
     Route: 061

REACTIONS (1)
  - Product use in unapproved indication [Unknown]
